FAERS Safety Report 7586909-9 (Version None)
Quarter: 2011Q3

REPORT INFORMATION
  Report Type: 
  Country: None (occurrence: None)
  Receive Date: 20110701
  Receipt Date: 20110619
  Transmission Date: 20111222
  Serious: Yes (Other)
  Sender: FDA-Public Use
  Company Number: GB-TEVA-287607ISR

PATIENT
  Age: 4 Month

DRUGS (3)
  1. FLUDARABINE PHOSPHATE [Suspect]
  2. TREOSULFAN [Suspect]
  3. ALEMTUZUMAB [Concomitant]

REACTIONS (1)
  - CONVULSION [None]
